FAERS Safety Report 23401927 (Version 1)
Quarter: 2024Q1

REPORT INFORMATION
  Report Type: Spontaneous
  Country: CN (occurrence: CN)
  Receive Date: 20240115
  Receipt Date: 20240115
  Transmission Date: 20240410
  Serious: Yes (Hospitalization)
  Sender: FDA-Public Use
  Company Number: CN-HUTCHMED LIMITED-HMP2024CN00017

PATIENT
  Age: 67 Year
  Sex: Female

DRUGS (1)
  1. FRUQUINTINIB [Suspect]
     Active Substance: FRUQUINTINIB
     Indication: Gastrointestinal carcinoma
     Dosage: 3 MILLIGRAM, QD
     Route: 048
     Dates: start: 20231105

REACTIONS (7)
  - Diarrhoea [Recovering/Resolving]
  - Abdominal distension [Unknown]
  - Poor quality sleep [Unknown]
  - Urine output decreased [Unknown]
  - Abdominal pain upper [Unknown]
  - Listless [Unknown]
  - Decreased appetite [Unknown]

NARRATIVE: CASE EVENT DATE: 20231225
